FAERS Safety Report 17408113 (Version 2)
Quarter: 2020Q1

REPORT INFORMATION
  Report Type: Report from Study
  Country: IN (occurrence: IN)
  Receive Date: 20200212
  Receipt Date: 20200326
  Transmission Date: 20200409
  Serious: Yes (Other)
  Sender: FDA-Public Use
  Company Number: NVSC2020IN034861

PATIENT
  Age: 62 Year
  Sex: Male
  Weight: 100.8 kg

DRUGS (3)
  1. TELMIKIND-H [Concomitant]
     Indication: BLOOD PRESSURE ABNORMAL
     Dosage: 1 DF, QD
     Route: 048
  2. CONCOR [Concomitant]
     Active Substance: BISOPROLOL FUMARATE
     Indication: BLOOD PRESSURE MEASUREMENT
     Dosage: UNK, QD
     Route: 048
  3. GALVUS MET [Suspect]
     Active Substance: METFORMIN HYDROCHLORIDE\VILDAGLIPTIN
     Indication: DIABETES MELLITUS
     Dosage: 1 DF, BID (POST MEALS)
     Route: 048

REACTIONS (2)
  - Cellulitis [Unknown]
  - Hyperglycaemia [Unknown]

NARRATIVE: CASE EVENT DATE: 2015
